FAERS Safety Report 7283009-2 (Version None)
Quarter: 2011Q1

REPORT INFORMATION
  Report Type: 
  Country: None (occurrence: None)
  Receive Date: 20110209
  Receipt Date: 20101220
  Transmission Date: 20110831
  Serious: Yes (Other)
  Sender: FDA-Public Use
  Company Number: US-BAYER-201024843NA

PATIENT
  Sex: Female

DRUGS (2)
  1. YASMIN [Suspect]
     Route: 048
     Dates: start: 20080117, end: 20080701
  2. YASMIN [Suspect]
     Indication: PRODUCT USED FOR UNKNOWN INDICATION
     Route: 048
     Dates: start: 20050629, end: 20070401

REACTIONS (1)
  - GALLBLADDER DISORDER [None]
